FAERS Safety Report 4563441-8 (Version None)
Quarter: 2005Q1

REPORT INFORMATION
  Report Type: 
  Country: None (occurrence: None)
  Receive Date: 20050128
  Receipt Date: 20040518
  Transmission Date: 20050727
  Serious: No
  Sender: FDA-Public Use
  Company Number: US-GLAXOSMITHKLINE-A0511232A

PATIENT
  Sex: Female

DRUGS (6)
  1. WELLBUTRIN [Suspect]
     Indication: DRUG USE FOR UNKNOWN INDICATION
  2. GABITRIL [Suspect]
     Route: 048
  3. ESTROGEN [Suspect]
  4. XANAX [Suspect]
  5. THYROID TAB [Suspect]
  6. PAIN MEDICATION [Suspect]

REACTIONS (3)
  - DISORIENTATION [None]
  - DRUG INTERACTION [None]
  - EUPHORIC MOOD [None]
